FAERS Safety Report 14907811 (Version 1)
Quarter: 2018Q2

REPORT INFORMATION
  Report Type: Report from Study
  Country: BE (occurrence: BE)
  Receive Date: 20180517
  Receipt Date: 20180517
  Transmission Date: 20180711
  Serious: Yes (Disabling)
  Sender: FDA-Public Use
  Company Number: BE-TAKEDA-2018TEU003102

PATIENT
  Age: 74 Year
  Sex: Male
  Weight: 70 kg

DRUGS (2)
  1. FIBRINOGEN, THROMBIN [Suspect]
     Active Substance: FIBRINOGEN HUMAN\THROMBIN HUMAN
     Indication: LYMPHADENECTOMY
     Dosage: UNK
     Route: 065
     Dates: start: 20150123, end: 20150123
  2. LIPITOR [Concomitant]
     Active Substance: ATORVASTATIN CALCIUM
     Dosage: 20 MG, QD
     Dates: start: 2010

REACTIONS (2)
  - Haematoma [Not Recovered/Not Resolved]
  - Infected lymphocele [Recovered/Resolved]

NARRATIVE: CASE EVENT DATE: 20150205
